FAERS Safety Report 9275090 (Version 4)
Quarter: 2015Q1

REPORT INFORMATION
  Report Type: Spontaneous
  Country: US (occurrence: None)
  Receive Date: 20130430
  Receipt Date: 20150330
  Transmission Date: 20150721
  Serious: Yes (Life-Threatening, Hospitalization, Other)
  Sender: FDA-Public Use
  Company Number: ADR-2013-00726

PATIENT
  Age: 53 Year
  Sex: Female

DRUGS (3)
  1. MARCAINE [Suspect]
     Active Substance: BUPIVACAINE HYDROCHLORIDE
     Dosage: (10MG/ML, 4.675 MG.ML; SEE ALSO B5)
  2. MORPHINE INTRATHECAL [Suspect]
     Active Substance: MORPHINE
     Dosage: SEE B5
  3. BACLOFEN INTRATHECAL - 50 MCG/ML [Suspect]
     Active Substance: BACLOFEN
     Indication: PAIN

REACTIONS (15)
  - Unresponsive to stimuli [None]
  - Loss of consciousness [None]
  - Incorrect route of drug administration [None]
  - Respiratory arrest [None]
  - Device deployment issue [None]
  - Device leakage [None]
  - Respiratory failure [None]
  - Device dislocation [None]
  - Feeling abnormal [None]
  - Overdose [None]
  - Hypoaesthesia oral [None]
  - Device kink [None]
  - Dry mouth [None]
  - Cyanosis [None]
  - Cardiac arrest [None]

NARRATIVE: CASE EVENT DATE: 20130423
